FAERS Safety Report 4507648-4 (Version None)
Quarter: 2004Q4

REPORT INFORMATION
  Report Type: 
  Country: None (occurrence: None)
  Receive Date: 20041123
  Receipt Date: 20041022
  Transmission Date: 20050328
  Serious: Yes (Hospitalization)
  Sender: FDA-Public Use
  Company Number: DE-ABBOTT-04P-062-0278497-00

PATIENT
  Sex: Female
  Weight: 65 kg

DRUGS (10)
  1. HUMIRA [Suspect]
     Indication: RHEUMATOID ARTHRITIS
     Route: 058
     Dates: start: 20030901
  2. HUMIRA [Suspect]
     Indication: SPINAL OSTEOARTHRITIS
  3. LEFLUNOMIDE [Suspect]
     Indication: RHEUMATOID ARTHRITIS
     Route: 048
     Dates: start: 20021201
  4. LEFLUNOMIDE [Suspect]
  5. ESOMEPRAZOLE [Concomitant]
     Indication: PROPHYLAXIS AGAINST GASTROINTESTINAL ULCER
     Route: 048
     Dates: start: 20030701
  6. ACEMETACIN [Concomitant]
     Indication: RHEUMATOID ARTHRITIS
     Route: 048
  7. PREDNISOLONE [Concomitant]
     Indication: RHEUMATOID ARTHRITIS
     Route: 048
  8. ALENDRONATE SODIUM [Concomitant]
     Indication: DRUG USE FOR UNKNOWN INDICATION
     Dates: end: 20040701
  9. DIMETINDENE MALEATE [Concomitant]
     Indication: PRURITUS
     Dates: start: 20030301
  10. CETIRIZINE HCL [Concomitant]
     Indication: PRURITUS
     Dates: start: 20030301

REACTIONS (3)
  - BICYTOPENIA [None]
  - IRON DEFICIENCY ANAEMIA [None]
  - LEUKOPENIA [None]
